FAERS Safety Report 25021553 (Version 1)
Quarter: 2025Q1

REPORT INFORMATION
  Report Type: Spontaneous
  Country: US (occurrence: US)
  Receive Date: 20250228
  Receipt Date: 20250228
  Transmission Date: 20250409
  Serious: Yes (Death, Hospitalization)
  Sender: MERCK SHARP & DOHME LLC
  Company Number: US-009507513-2257867

PATIENT
  Sex: Male

DRUGS (1)
  1. KEYTRUDA [Suspect]
     Active Substance: PEMBROLIZUMAB

REACTIONS (5)
  - Death [Fatal]
  - Carditis [Unknown]
  - Hepatitis [Unknown]
  - Myasthenia gravis [Unknown]
  - Multi-organ disorder [Unknown]
